FAERS Safety Report 14289407 (Version 1)
Quarter: 2017Q4

REPORT INFORMATION
  Report Type: Spontaneous
  Country: IT (occurrence: IT)
  Receive Date: 20171214
  Receipt Date: 20171214
  Transmission Date: 20180321
  Serious: Yes (Other)
  Sender: FDA-Public Use
  Company Number: IT-GLAXOSMITHKLINE-IT2017190437

PATIENT
  Sex: Female

DRUGS (3)
  1. NIMESULIDE [Suspect]
     Active Substance: NIMESULIDE
     Indication: NEURITIS
     Dosage: UNK
  2. DICLOFENAC [Suspect]
     Active Substance: DICLOFENAC
     Indication: NEURITIS
     Dosage: UNK
  3. PARACETAMOL [Suspect]
     Active Substance: ACETAMINOPHEN
     Indication: NEURITIS
     Dosage: UNK

REACTIONS (3)
  - Contraindication to medical treatment [Unknown]
  - Overdose [Unknown]
  - Maternal exposure during pregnancy [Unknown]
